FAERS Safety Report 21486449 (Version 2)
Quarter: 2022Q4

REPORT INFORMATION
  Report Type: Spontaneous
  Country: PE (occurrence: PE)
  Receive Date: 20221020
  Receipt Date: 20221103
  Transmission Date: 20230113
  Serious: Yes (Hospitalization, Disabling, Other)
  Sender: FDA-Public Use
  Company Number: PE-MYLANLABS-2022M1115272

PATIENT
  Sex: Female

DRUGS (8)
  1. PREDNISOLONE [Suspect]
     Active Substance: PREDNISOLONE
     Indication: Product used for unknown indication
     Dosage: 1 DOSAGE FORM, QD (24 HOURS PER 15 DAYS)
     Route: 048
  2. SERTRALINE [Suspect]
     Active Substance: SERTRALINE HYDROCHLORIDE
     Indication: Product used for unknown indication
     Dosage: UNK, QD (HALF TABLET 24 HOURS PER 3 DAYS)
     Route: 048
     Dates: start: 20220917
  3. ACETAMINOPHEN [Suspect]
     Active Substance: ACETAMINOPHEN
     Indication: Pain
     Dosage: 2 DOSAGE FORM (8 HOURS)
     Route: 048
  4. LORATADINE [Suspect]
     Active Substance: LORATADINE
     Indication: Product used for unknown indication
     Dosage: 1 DOSAGE FORM, QD (24 HOURS PER 10 DAYS)
     Route: 048
  5. COVID-19 VACCINE NOS [Suspect]
     Active Substance: COVID-19 VACCINE NOS
     Indication: COVID-19
     Dosage: UNK
     Route: 030
     Dates: start: 20210701, end: 20210701
  6. SODIUM HYALURONATE [Suspect]
     Active Substance: HYALURONATE SODIUM
     Indication: Product used for unknown indication
     Dosage: 1 GTT DROPS, QD, (1 DROP IN EACH EYE)
     Route: 047
  7. CLONAZEPAM [Suspect]
     Active Substance: CLONAZEPAM
     Indication: Product used for unknown indication
     Dosage: 1 DOSAGE FORM, QD
     Route: 048
  8. ESTRIOL [Suspect]
     Active Substance: ESTRIOL
     Indication: Product used for unknown indication
     Dosage: 1 DOSAGE FORM, HS (AT NIGHT PER 3 WEEKS)
     Route: 067

REACTIONS (2)
  - Disease progression [Unknown]
  - Arthritis [Unknown]
